FAERS Safety Report 7254485-6 (Version None)
Quarter: 2011Q1

REPORT INFORMATION
  Report Type: 
  Country: None (occurrence: None)
  Receive Date: 20110129
  Receipt Date: 20100428
  Transmission Date: 20110831
  Serious: No
  Sender: FDA-Public Use
  Company Number: US-ABBOTT-10P-163-0641152-00

PATIENT
  Sex: Female
  Weight: 99.88 kg

DRUGS (5)
  1. FOLIC ACID [Concomitant]
     Indication: VITAMIN SUPPLEMENTATION
     Route: 048
  2. SULFA [Concomitant]
     Indication: SUPPLEMENTATION THERAPY
  3. WELLBUTRIN [Concomitant]
     Indication: DEPRESSION
  4. HUMIRA [Suspect]
     Indication: RHEUMATOID ARTHRITIS
     Route: 058
     Dates: start: 20070101
  5. SEASONIQUE [Concomitant]
     Indication: CONTRACEPTION

REACTIONS (1)
  - INJECTION SITE PAIN [None]
